FAERS Safety Report 7504406-3 (Version None)
Quarter: 2011Q2

REPORT INFORMATION
  Report Type: 
  Country: None (occurrence: None)
  Receive Date: 20110525
  Receipt Date: 20110516
  Transmission Date: 20111010
  Serious: Yes (Other)
  Sender: FDA-Public Use
  Company Number: US-ELI_LILLY_AND_COMPANY-US201104005888

PATIENT
  Sex: Male
  Weight: 144.67 kg

DRUGS (3)
  1. PREDNISONE [Concomitant]
  2. LANTUS [Concomitant]
     Dosage: UNK
  3. HUMALOG [Suspect]
     Indication: DIABETES MELLITUS
     Dosage: 50 U, TID

REACTIONS (1)
  - HYPOGLYCAEMIC UNCONSCIOUSNESS [None]
